FAERS Safety Report 8777524 (Version 1)
Quarter: 2012Q4

REPORT INFORMATION
  Report Type: Report from Study
  Country: US (occurrence: US)
  Receive Date: 20120912
  Receipt Date: 20120912
  Transmission Date: 20130627
  Serious: Yes (Hospitalization)
  Sender: FDA-Public Use
  Company Number: US-UCBSA-020089

PATIENT
  Age: 51 Year
  Sex: Male
  Weight: 118 kg

DRUGS (4)
  1. CIMZIA [Suspect]
     Indication: CROHN^S DISEASE
     Route: 058
     Dates: start: 20100428, end: 20100526
  2. CIMZIA [Suspect]
     Indication: CROHN^S DISEASE
     Dates: start: 20100609, end: 20100915
  3. PREDNISONE [Concomitant]
     Indication: CROHN^S DISEASE
     Dates: start: 200802
  4. ACETAMINOPHEN [Concomitant]
     Indication: CROHN^S DISEASE

REACTIONS (1)
  - Abdominal abscess [Recovered/Resolved]
